FAERS Safety Report 26199617 (Version 1)
Quarter: 2025Q4

REPORT INFORMATION
  Report Type: Other
  Country: TR (occurrence: TR)
  Receive Date: 20251225
  Receipt Date: 20251225
  Transmission Date: 20260117
  Serious: Yes (Hospitalization)
  Sender: BIONPHARMA INC.
  Company Number: TR-Bion-015346

PATIENT
  Age: 18 Year
  Sex: Male

DRUGS (4)
  1. VALPROIC ACID [Suspect]
     Active Substance: VALPROIC ACID
     Indication: Bipolar I disorder
  2. OLANZAPINE [Concomitant]
     Active Substance: OLANZAPINE
     Indication: Bipolar I disorder
  3. VALPROIC ACID [Suspect]
     Active Substance: VALPROIC ACID
     Indication: Mania
  4. OLANZAPINE [Concomitant]
     Active Substance: OLANZAPINE
     Indication: Mania

REACTIONS (3)
  - Condition aggravated [Unknown]
  - Neurological symptom [Recovering/Resolving]
  - Gastrointestinal disorder [Recovering/Resolving]
